FAERS Safety Report 9311604 (Version 1)
Quarter: 2013Q2

REPORT INFORMATION
  Report Type: Spontaneous
  Country: US (occurrence: US)
  Receive Date: 20130528
  Receipt Date: 20130528
  Transmission Date: 20140414
  Serious: No
  Sender: FDA-Public Use
  Company Number: US-ABBOTT-13P-163-1041315-00

PATIENT
  Sex: Female

DRUGS (1)
  1. ZEMPLAR [Suspect]
     Indication: NEPHROPATHY
     Dates: start: 20121221

REACTIONS (1)
  - Dizziness [Not Recovered/Not Resolved]
